FAERS Safety Report 4603718-0 (Version None)
Quarter: 2005Q1

REPORT INFORMATION
  Report Type: 
  Country: None (occurrence: None)
  Receive Date: 20050310
  Receipt Date: 20050307
  Transmission Date: 20050727
  Serious: Yes (Life-Threatening)
  Sender: FDA-Public Use
  Company Number: PHBS2005IT03351

PATIENT
  Age: 84 Year
  Sex: Female

DRUGS (3)
  1. PROZAC [Suspect]
     Indication: DEPRESSION
     Dosage: 10 MG, QD
     Route: 048
     Dates: start: 20041101, end: 20050223
  2. ACETYLSALICYLIC ACID [Concomitant]
     Dosage: 100 MG, QD
  3. COTAREG [Suspect]
     Indication: HYPERTENSION
     Dosage: 0.5 DF, QD
     Route: 048
     Dates: start: 20030101, end: 20050223

REACTIONS (5)
  - DISORIENTATION [None]
  - HYPOCALCAEMIA [None]
  - HYPONATRAEMIA [None]
  - PETIT MAL EPILEPSY [None]
  - SOPOR [None]
